FAERS Safety Report 7361218-1 (Version None)
Quarter: 2011Q1

REPORT INFORMATION
  Report Type: 
  Country: None (occurrence: None)
  Receive Date: 20110318
  Receipt Date: 20110225
  Transmission Date: 20110831
  Serious: No
  Sender: FDA-Public Use
  Company Number: US-BAYER-2011-019130

PATIENT
  Sex: Female
  Weight: 82 kg

DRUGS (3)
  1. ALEVE (CAPLET) [Suspect]
     Indication: MYALGIA
     Dosage: UNK
     Route: 048
     Dates: start: 20100801, end: 20110225
  2. ATENOLOL [Concomitant]
  3. ZYRTEC [Concomitant]

REACTIONS (3)
  - TINNITUS [None]
  - NO ADVERSE EVENT [None]
  - ABDOMINAL PAIN [None]
